FAERS Safety Report 13794456 (Version 1)
Quarter: 2017Q3

REPORT INFORMATION
  Report Type: Spontaneous
  Country: US (occurrence: US)
  Receive Date: 20170726
  Receipt Date: 20170726
  Transmission Date: 20171127
  Serious: No
  Sender: FDA-Public Use
  Company Number: US-PFIZER INC-2017322175

PATIENT
  Sex: Male

DRUGS (1)
  1. GABAPENTIN. [Suspect]
     Active Substance: GABAPENTIN
     Dosage: 3200 MG, DAILY (FOUR 800 MG TABLETS)

REACTIONS (7)
  - Burning sensation [Unknown]
  - Hypoaesthesia [Unknown]
  - Impetigo [Unknown]
  - Drug ineffective [Unknown]
  - Vitamin C deficiency [Unknown]
  - Gait disturbance [Unknown]
  - Joint injury [Unknown]
